FAERS Safety Report 5808010-4 (Version None)
Quarter: 2008Q3

REPORT INFORMATION
  Report Type: 
  Country: None (occurrence: None)
  Receive Date: 20080708
  Receipt Date: 20080624
  Transmission Date: 20090109
  Serious: Yes (Disabling)
  Sender: FDA-Public Use
  Company Number: US023953

PATIENT
  Age: 18 Year
  Sex: Female

DRUGS (1)
  1. MODIODAL [Suspect]
     Indication: NARCOLEPSY
     Dosage: ORAL
     Route: 048
     Dates: start: 20070101

REACTIONS (1)
  - VISUAL IMPAIRMENT [None]
